FAERS Safety Report 9038885 (Version 2)
Quarter: 2013Q3

REPORT INFORMATION
  Report Type: Spontaneous
  Country: US (occurrence: US)
  Receive Date: 20130129
  Receipt Date: 20130719
  Transmission Date: 20140515
  Serious: Yes (Hospitalization, Other)
  Sender: FDA-Public Use
  Company Number: US-009507513-1301USA013262

PATIENT
  Sex: Female
  Weight: 108.84 kg

DRUGS (1)
  1. NUVARING [Suspect]
     Indication: CONTRACEPTION
     Dosage: UNK
     Route: 067
     Dates: start: 201002, end: 201102

REACTIONS (4)
  - Deep vein thrombosis [Unknown]
  - Pulmonary embolism [Unknown]
  - Maternal exposure before pregnancy [Unknown]
  - Dyspepsia [Unknown]
